FAERS Safety Report 15903697 (Version 2)
Quarter: 2019Q1

REPORT INFORMATION
  Report Type: Other
  Country: IT (occurrence: IT)
  Receive Date: 20190203
  Receipt Date: 20190315
  Transmission Date: 20190417
  Serious: Yes (Other)
  Sender: FDA-Public Use
  Company Number: IT-CELLTRION INC.-2019IT018357

PATIENT

DRUGS (3)
  1. CALCITRIOL. [Concomitant]
     Active Substance: CALCITRIOL
  2. TRUXIMA [Suspect]
     Active Substance: RITUXIMAB-ABBS
     Indication: SJOGREN^S SYNDROME
     Dosage: 500 MG (CUMULATIVE DOSE TO FIRST REACTION), TOTAL
     Route: 042
     Dates: start: 20180516, end: 20180516
  3. PLAQUENIL                          /00072602/ [Concomitant]
     Active Substance: HYDROXYCHLOROQUINE DIPHOSPHATE
     Dosage: 1 DF
     Route: 048

REACTIONS (9)
  - Feeling hot [Unknown]
  - Dyspnoea [Unknown]
  - Tremor [Unknown]
  - Product use in unapproved indication [Unknown]
  - Chills [Unknown]
  - Diarrhoea [Unknown]
  - Arthralgia [Unknown]
  - Rash [Unknown]
  - Pyrexia [Unknown]

NARRATIVE: CASE EVENT DATE: 20180516
